FAERS Safety Report 16308895 (Version 4)
Quarter: 2019Q3

REPORT INFORMATION
  Report Type: Report from Study
  Country: None (occurrence: IT)
  Receive Date: 20190514
  Receipt Date: 20190822
  Transmission Date: 20191004
  Serious: Yes (Hospitalization, Other)
  Sender: FDA-Public Use
  Company Number: IT-ABBVIE-19S-083-2780539-00

PATIENT
  Age: 74 Year
  Sex: Male

DRUGS (1)
  1. DUODOPA [Suspect]
     Active Substance: CARBIDOPA\LEVODOPA
     Indication: PARKINSON^S DISEASE
     Dosage: MD 8(+3) CR 4,5 ED 3
     Route: 050
     Dates: start: 20190218

REACTIONS (5)
  - Pleural effusion [Not Recovered/Not Resolved]
  - Weight decreased [Unknown]
  - Cognitive disorder [Unknown]
  - Septic shock [Unknown]
  - Clostridium difficile infection [Not Recovered/Not Resolved]

NARRATIVE: CASE EVENT DATE: 2019
